FAERS Safety Report 10977448 (Version 1)
Quarter: 2015Q1

REPORT INFORMATION
  Report Type: Spontaneous
  Country: US (occurrence: None)
  Receive Date: 20150330
  Receipt Date: 20150330
  Transmission Date: 20150721
  Serious: Yes (Life-Threatening, Hospitalization)
  Sender: FDA-Public Use
  Company Number: US-H14001-15-00478

PATIENT
  Age: 61 Year
  Sex: Male
  Weight: 84 kg

DRUGS (6)
  1. CEFAZOLIN [Suspect]
     Active Substance: CEFAZOLIN
     Indication: PRODUCT USED FOR UNKNOWN INDICATION
  2. PROPOFOL (PROPOFOL) [Concomitant]
     Active Substance: PROPOFOL
  3. FENTANYL  (FENTANYL) [Concomitant]
     Active Substance: FENTANYL
  4. ROCURONIUM (ROCURONIUM) [Concomitant]
     Active Substance: ROCURONIUM BROMIDE
  5. MIDAZOLAM ((MIDAZOLAM) [Concomitant]
  6. ATRICURUM (ATRACURIUM) [Concomitant]

REACTIONS (4)
  - Abdominal compartment syndrome [None]
  - Hypotension [None]
  - Anaphylactic shock [None]
  - Pleural effusion [None]
